FAERS Safety Report 8084979-5 (Version None)
Quarter: 2012Q1

REPORT INFORMATION
  Report Type: 
  Country: None (occurrence: None)
  Receive Date: 20120128
  Receipt Date: 20110329
  Transmission Date: 20120608
  Serious: No
  Sender: FDA-Public Use
  Company Number: US-ABBOTT-11P-163-0715886-00

PATIENT
  Sex: Female
  Weight: 104.42 kg

DRUGS (8)
  1. XANAX [Concomitant]
     Indication: DEPRESSION
  2. PLAQUENIL [Concomitant]
     Indication: RHEUMATOID ARTHRITIS
  3. CYMBALTA [Concomitant]
     Indication: DEPRESSION
  4. HUMIRA [Suspect]
     Indication: RHEUMATOID ARTHRITIS
     Route: 058
     Dates: start: 20110201
  5. STEROID INJECTION [Suspect]
     Indication: RHEUMATOID ARTHRITIS
     Dates: start: 20110201, end: 20110201
  6. METHOTREXATE [Concomitant]
     Indication: RHEUMATOID ARTHRITIS
  7. WELLBUTRIN [Concomitant]
     Indication: DEPRESSION
  8. TORADOL [Suspect]
     Indication: RHEUMATOID ARTHRITIS
     Dates: start: 20110201, end: 20110201

REACTIONS (3)
  - ABDOMINAL PAIN [None]
  - MALAISE [None]
  - NAUSEA [None]
